FAERS Safety Report 7563275-6 (Version None)
Quarter: 2011Q2

REPORT INFORMATION
  Report Type: 
  Country: None (occurrence: None)
  Receive Date: 20110622
  Receipt Date: 20110616
  Transmission Date: 20111010
  Serious: Yes (Hospitalization)
  Sender: FDA-Public Use
  Company Number: US-SANOFI-AVENTIS-2011SA038808

PATIENT
  Age: 80 Year
  Sex: Male

DRUGS (2)
  1. PLAVIX [Suspect]
     Route: 048
     Dates: start: 20110301
  2. PLAVIX [Suspect]
     Indication: PERIPHERAL ARTERY ANEURYSM
     Route: 048
     Dates: end: 20110301

REACTIONS (2)
  - CORONARY ARTERY OCCLUSION [None]
  - OVERDOSE [None]
